FAERS Safety Report 9925282 (Version 1)
Quarter: 2014Q1

REPORT INFORMATION
  Report Type: Spontaneous
  Country: US (occurrence: None)
  Receive Date: 20140225
  Receipt Date: 20140225
  Transmission Date: 20141002
  Serious: Yes (Life-Threatening, Hospitalization, Other)
  Sender: FDA-Public Use
  Company Number: None

PATIENT
  Age: 70 Year
  Sex: Female
  Weight: 49.9 kg

DRUGS (1)
  1. TRAZADONE [Suspect]
     Route: 048
     Dates: start: 20110330, end: 20120426

REACTIONS (2)
  - Gait disturbance [None]
  - Gastric ulcer haemorrhage [None]
